FAERS Safety Report 5063057-3 (Version None)
Quarter: 2006Q3

REPORT INFORMATION
  Report Type: 
  Country: None (occurrence: None)
  Receive Date: 20060727
  Receipt Date: 20060724
  Transmission Date: 20061208
  Serious: Yes (Hospitalization)
  Sender: FDA-Public Use
  Company Number: PHBS2006BE10991

PATIENT
  Sex: Female

DRUGS (24)
  1. FRAXIPARINE [Concomitant]
     Dosage: 15000 U
     Dates: start: 20060226
  2. DAFALGAN [Concomitant]
     Dosage: UNK, PRN
     Dates: start: 20060303
  3. DOMINAL [Concomitant]
     Dosage: 40 MG, QD
     Route: 065
     Dates: start: 20060310
  4. EPHYNAL [Concomitant]
     Dates: start: 20000811
  5. PLAVIX [Concomitant]
     Dosage: 75 MG, QD
     Dates: start: 20060310
  6. FLUOXETINE [Concomitant]
     Dosage: 20 MG, QD
     Route: 065
     Dates: start: 20060327
  7. IMODIUM [Concomitant]
     Dosage: 2 MG, PRN
     Dates: start: 20060402
  8. CONTRAMAL [Concomitant]
     Dosage: 50 MG, PRN
     Dates: start: 20060501
  9. CETIRIZINE [Concomitant]
     Dosage: 10 MG, QD
     Dates: start: 20060630
  10. LIORESAL [Suspect]
     Indication: MUSCLE SPASTICITY
     Dosage: 0.5 TABLET, QD
     Route: 048
     Dates: start: 20060717, end: 20060717
  11. LIORESAL [Suspect]
     Dosage: 0.5 TAB IN MORNING AND 2 TABLETS IN EVENING
     Route: 048
     Dates: start: 20060718, end: 20060718
  12. BEFRACT FORTE [Concomitant]
     Dosage: UNK, QD
     Dates: start: 20010401
  13. DEANXIT [Concomitant]
     Dosage: UNK, QD
     Dates: start: 20020206
  14. CEDOCARD [Concomitant]
     Dosage: 5 MG, PRN
     Route: 060
     Dates: start: 20020322
  15. FOLIUM ACID [Concomitant]
     Dosage: 5 MG, QD
     Route: 065
     Dates: start: 20020518
  16. XANAX [Concomitant]
     Dosage: 0.5 MG, QD
     Route: 065
     Dates: start: 20020525
  17. KAYEXALATE [Concomitant]
     Dosage: UNK, QD
     Dates: start: 20020821
  18. CORUNO [Concomitant]
     Dosage: 16 MG, QD
     Route: 065
     Dates: start: 20040317
  19. RENAGEL [Concomitant]
     Dosage: 2 TABLETS, TID
     Route: 048
     Dates: start: 20040601
  20. PRAVASTATIN [Concomitant]
     Dosage: 0.5 TABLET/DAY
     Route: 048
     Dates: start: 20050202
  21. MOTILIUM [Concomitant]
     Dosage: 10 MG, PRN
     Route: 065
     Dates: start: 20050808
  22. NOVOMIX 30 [Concomitant]
     Dates: start: 20060113
  23. CIPROFLOXACIN [Concomitant]
     Dosage: 500 MG, QD
     Route: 065
     Dates: start: 20060717
  24. CLINDAMYCIN [Concomitant]
     Dosage: 2 TABLETS, TID
     Route: 048
     Dates: start: 20060714

REACTIONS (5)
  - AGITATION [None]
  - CONFUSIONAL STATE [None]
  - ELECTROENCEPHALOGRAM ABNORMAL [None]
  - PAIN [None]
  - PANIC ATTACK [None]
